FAERS Safety Report 12101649 (Version 3)
Quarter: 2016Q2

REPORT INFORMATION
  Report Type: Report from Study
  Country: FR (occurrence: FR)
  Receive Date: 20160222
  Receipt Date: 20160426
  Transmission Date: 20160815
  Serious: Yes (Disabling)
  Sender: FDA-Public Use
  Company Number: FR-EXELIXIS-XL18416006029

PATIENT
  Age: 73 Year
  Sex: Female
  Weight: 55 kg

DRUGS (6)
  1. INEXIUM [Concomitant]
     Active Substance: ESOMEPRAZOLE
  2. KARDEGIC [Concomitant]
     Active Substance: ASPIRIN LYSINE
  3. XL184 [Suspect]
     Active Substance: CABOZANTINIB
     Indication: MEDULLARY THYROID CANCER
     Dosage: 75 MG, QD
     Route: 048
     Dates: start: 20101221
  4. OPTRUMA [Concomitant]
     Active Substance: RALOXIFENE HYDROCHLORIDE
  5. IMODIUM [Concomitant]
     Active Substance: LOPERAMIDE HYDROCHLORIDE
  6. OROCAL [Concomitant]
     Active Substance: CALCIUM CARBONATE

REACTIONS (1)
  - Retinal depigmentation [Not Recovered/Not Resolved]

NARRATIVE: CASE EVENT DATE: 20160208
